FAERS Safety Report 7002320-3 (Version None)
Quarter: 2010Q3

REPORT INFORMATION
  Report Type: 
  Country: None (occurrence: None)
  Receive Date: 20100920
  Receipt Date: 20071109
  Transmission Date: 20110219
  Serious: Yes (Other)
  Sender: FDA-Public Use
  Company Number: US-ASTRAZENECA-2007UW09677

PATIENT
  Age: 573 Month
  Sex: Female
  Weight: 97.5 kg

DRUGS (24)
  1. SEROQUEL [Suspect]
     Indication: BIPOLAR DISORDER
     Dosage: 25-200 MG
     Route: 048
     Dates: start: 20000107, end: 20060601
  2. SEROQUEL [Suspect]
     Indication: DEPRESSION
     Dosage: 25-200 MG
     Route: 048
     Dates: start: 20000107, end: 20060601
  3. SEROQUEL [Suspect]
     Indication: SCHIZOPHRENIA
     Dosage: 25-200 MG
     Route: 048
     Dates: start: 20000107, end: 20060601
  4. SEROQUEL [Suspect]
     Dosage: 300 MG - 600 MG
     Route: 048
     Dates: start: 20050310
  5. SEROQUEL [Suspect]
     Dosage: 300 MG - 600 MG
     Route: 048
     Dates: start: 20050310
  6. SEROQUEL [Suspect]
     Dosage: 300 MG - 600 MG
     Route: 048
     Dates: start: 20050310
  7. CELEBREX [Concomitant]
     Dosage: 200 MG AS REQUIRED
     Dates: start: 20010802
  8. BUSPAR [Concomitant]
     Indication: PANIC DISORDER
     Dosage: 15 MG - 100 MG
     Route: 048
     Dates: start: 20010802
  9. BUSPAR [Concomitant]
     Indication: GENERALISED ANXIETY DISORDER
     Dosage: 15 MG - 100 MG
     Route: 048
     Dates: start: 20010802
  10. XENICAL [Concomitant]
     Indication: OBESITY
     Dates: start: 20011101, end: 20011116
  11. AUGMENTIN '125' [Concomitant]
     Indication: ACUTE SINUSITIS
     Route: 048
     Dates: start: 20011116
  12. AUGMENTIN '125' [Concomitant]
     Indication: LYMPHADENOPATHY
     Route: 048
     Dates: start: 20011116
  13. ZYRTEC [Concomitant]
     Indication: ACUTE SINUSITIS
     Dates: start: 20011116
  14. ZYRTEC [Concomitant]
     Indication: RHINITIS ALLERGIC
     Dates: start: 20011116
  15. TEQUIN [Concomitant]
     Indication: URINARY TRACT INFECTION
     Dates: start: 20020212
  16. TEQUIN [Concomitant]
     Indication: UPPER RESPIRATORY TRACT INFECTION
     Dates: start: 20020212
  17. TEQUIN [Concomitant]
     Indication: BRONCHITIS
     Dates: start: 20020212
  18. DIFLUCAN [Concomitant]
     Indication: VULVOVAGINAL CANDIDIASIS
     Dates: start: 20020212
  19. ATARAX [Concomitant]
     Indication: PRURITUS
     Dates: start: 20020212
  20. ADVAIR DISKUS 100/50 [Concomitant]
     Indication: ASTHMA
     Dosage: 250/50 ONE INHALATION EVERY 12 HOURS
     Dates: start: 20021108
  21. SINGULAIR [Concomitant]
     Indication: ASTHMA
     Dates: start: 20021108
  22. BIDEX [Concomitant]
     Indication: UPPER RESPIRATORY TRACT INFECTION
     Route: 048
     Dates: start: 20010907
  23. BIDEX [Concomitant]
     Indication: BRONCHITIS
     Route: 048
     Dates: start: 20010907
  24. PAXIL [Concomitant]
     Dosage: 20 MG - 37.5 MG
     Dates: start: 20040112

REACTIONS (5)
  - DIABETES MELLITUS INADEQUATE CONTROL [None]
  - HYPERGLYCAEMIA [None]
  - PANCREATITIS ACUTE [None]
  - SEDATION [None]
  - TYPE 2 DIABETES MELLITUS [None]
